FAERS Safety Report 20372283 (Version 1)
Quarter: 2022Q1

REPORT INFORMATION
  Report Type: Spontaneous
  Country: US (occurrence: US)
  Receive Date: 20220124
  Receipt Date: 20220124
  Transmission Date: 20220424
  Serious: Yes (Death)
  Sender: FDA-Public Use
  Company Number: US-MTPC-MTDA2022-0001333

PATIENT
  Age: 51 Year
  Sex: Female

DRUGS (2)
  1. RADICAVA [Suspect]
     Active Substance: EDARAVONE
     Indication: Amyotrophic lateral sclerosis
     Dosage: 60 MILLIGRAM, A 60-MINUTE PERIOD, DAILY DOSING FOR 14 DAYS, FOLLOWED BY A 14-DAY DRUG-FREE PERIOD
     Route: 042
  2. RADICAVA [Suspect]
     Active Substance: EDARAVONE
     Dosage: 60 MILLIGRAM, DAILY DOSING FOR 10 DAYS OUT OF 14-DAY PERIODS, FOLLOWED BY 14-DAY DRUG-FREE PERIODS
     Route: 042

REACTIONS (1)
  - Death [Fatal]

NARRATIVE: CASE EVENT DATE: 20211122
